FAERS Safety Report 26009035 (Version 1)
Quarter: 2025Q4

REPORT INFORMATION
  Report Type: Spontaneous
  Country: CA (occurrence: CA)
  Receive Date: 20251107
  Receipt Date: 20251107
  Transmission Date: 20260117
  Serious: Yes (Hospitalization)
  Sender: CELLTRION
  Company Number: CA-CELLTRION INC.-2025CA040218

PATIENT

DRUGS (3)
  1. YUFLYMA [Suspect]
     Active Substance: ADALIMUMAB-AATY
     Indication: Colitis ulcerative
     Dosage: 40MG SUBCUTANEOUSLY EVERY OTHER WEEK
     Route: 058
     Dates: start: 20250916
  2. YUFLYMA [Suspect]
     Active Substance: ADALIMUMAB-AATY
  3. SKYRIZI [Suspect]
     Active Substance: RISANKIZUMAB-RZAA
     Indication: Colitis ulcerative

REACTIONS (1)
  - Condition aggravated [Recovered/Resolved]
